FAERS Safety Report 9506032 (Version 1)
Quarter: 2013Q1

REPORT INFORMATION
  Report Type: Spontaneous
  Country: US (occurrence: None)
  Receive Date: 20130305
  Receipt Date: 20130305
  Transmission Date: 20140127
  Serious: Yes (Hospitalization, Other)
  Sender: FDA-Public Use
  Company Number: 163-21880-12050313

PATIENT
  Age: 78 Year
  Sex: Male
  Weight: 62.6 kg

DRUGS (18)
  1. REVLIMID (LENALIDOMIDE) [Suspect]
  2. ZOLPIDEM TARTRATE (ZOLPIDEM TARTRATE) [Suspect]
  3. TRAMADOL [Suspect]
  4. SUCRALFATE [Suspect]
  5. SODIUM BICARBONATE [Suspect]
  6. RENAGEL [Suspect]
  7. PANTOPRAZOLE [Suspect]
  8. METOLAZONE [Suspect]
  9. MEGESTROL ACETATE [Suspect]
  10. DEXAMETHASONE [Suspect]
  11. PROTONIX [Suspect]
  12. ZAROXOLYN [Suspect]
  13. ATIVAN (LORAZEPAM) [Suspect]
  14. HYDRALAZINE HCL [Suspect]
  15. LASIX (FUROSEMIDE) [Suspect]
  16. FUROSEMIDE [Suspect]
  17. NORVASC (AMLODIPINE BESILATE) [Suspect]
  18. VELCADE (BORTEZOMIB) [Suspect]

REACTIONS (5)
  - Orthostatic hypotension [None]
  - Rash generalised [None]
  - Pain in extremity [None]
  - Asthenia [None]
  - Hypoaesthesia [None]
